FAERS Safety Report 17548787 (Version 1)
Quarter: 2020Q1

REPORT INFORMATION
  Report Type: Spontaneous
  Country: US (occurrence: US)
  Receive Date: 20200306
  Receipt Date: 20200306
  Transmission Date: 20200409
  Serious: Yes (Life-Threatening, Hospitalization)
  Sender: FDA-Public Use
  Company Number: None

PATIENT
  Age: 75 Year
  Sex: Male
  Weight: 62.55 kg

DRUGS (2)
  1. EMPAGLIFLOZIN (EMPAGLIFLOZIN 5MG TAB) [Suspect]
     Active Substance: EMPAGLIFLOZIN
     Indication: PULMONARY EMBOLISM
     Route: 048
     Dates: start: 20200117, end: 20200214
  2. EMPAGLIFLOZIN (EMPAGLIFLOZIN 5MG TAB) [Suspect]
     Active Substance: EMPAGLIFLOZIN
     Indication: ATRIAL FIBRILLATION

REACTIONS (1)
  - Gastrointestinal haemorrhage [None]

NARRATIVE: CASE EVENT DATE: 20200214
